FAERS Safety Report 19879161 (Version 1)
Quarter: 2021Q3

REPORT INFORMATION
  Report Type: Report from Study
  Country: US (occurrence: US)
  Receive Date: 20210923
  Receipt Date: 20210923
  Transmission Date: 20211014
  Serious: Yes (Other)
  Sender: FDA-Public Use
  Company Number: US-SAREPTA THERAPEUTICS INC.-SRP2021-001679

PATIENT
  Sex: Male

DRUGS (1)
  1. ETEPLIRSEN [Suspect]
     Active Substance: ETEPLIRSEN
     Indication: DUCHENNE MUSCULAR DYSTROPHY
     Dosage: 30 MG/KG

REACTIONS (1)
  - Lower limb fracture [Recovered/Resolved]
